FAERS Safety Report 15643639 (Version 1)
Quarter: 2018Q4

REPORT INFORMATION
  Report Type: Spontaneous
  Country: US (occurrence: US)
  Receive Date: 20181121
  Receipt Date: 20181121
  Transmission Date: 20190205
  Serious: Yes (Hospitalization)
  Sender: FDA-Public Use
  Company Number: US-ALLERGAN-1853846US

PATIENT
  Age: 18 Year
  Sex: Female
  Weight: 84.1 kg

DRUGS (7)
  1. CELEXA [Suspect]
     Active Substance: CITALOPRAM HYDROBROMIDE
     Dosage: 20 MG, QD
     Route: 048
     Dates: start: 20170905, end: 20170912
  2. AMBIEN [Concomitant]
     Active Substance: ZOLPIDEM TARTRATE
     Indication: INSOMNIA
     Dosage: UNK
     Route: 065
     Dates: start: 20170508
  3. TRILEPTAL [Concomitant]
     Active Substance: OXCARBAZEPINE
     Indication: NEGATIVISM
     Dosage: UNK
     Route: 065
     Dates: start: 20160929
  4. CELEXA [Suspect]
     Active Substance: CITALOPRAM HYDROBROMIDE
     Indication: NEGATIVISM
     Dosage: 10 MG, BID
     Route: 048
     Dates: start: 20170913, end: 20170915
  5. CELEXA [Suspect]
     Active Substance: CITALOPRAM HYDROBROMIDE
     Dosage: 10 MG, QD
     Route: 048
     Dates: start: 20170829, end: 20170905
  6. GIANVI [Concomitant]
     Active Substance: DROSPIRENONE\ETHINYL ESTRADIOL
     Indication: MENSTRUATION IRREGULAR
     Dosage: UNK
     Route: 065
     Dates: start: 20170822
  7. BUSPIRONE [Concomitant]
     Active Substance: BUSPIRONE HYDROCHLORIDE
     Indication: NEGATIVISM
     Dosage: UNK
     Dates: start: 20160929, end: 20170915

REACTIONS (3)
  - Off label use [Unknown]
  - Overdose [Unknown]
  - Suicide attempt [Recovered/Resolved]

NARRATIVE: CASE EVENT DATE: 20170915
